FAERS Safety Report 11142554 (Version 2)
Quarter: 2015Q2

REPORT INFORMATION
  Report Type: Report from Study
  Country: US (occurrence: US)
  Receive Date: 20150527
  Receipt Date: 20150605
  Transmission Date: 20150821
  Serious: Yes (Hospitalization)
  Sender: FDA-Public Use
  Company Number: US-ACTELION-A-US2015-118345

PATIENT
  Age: 4 Year
  Sex: Female

DRUGS (6)
  1. PREDNISOLONE. [Concomitant]
     Active Substance: PREDNISOLONE
     Dosage: 5.4 MG, QOD
     Dates: start: 20121003
  2. ALBUTEROL. [Concomitant]
     Active Substance: ALBUTEROL
     Dosage: 2 PUFF, PRN
     Dates: start: 20150502
  3. SILDENAFIL. [Concomitant]
     Active Substance: SILDENAFIL
     Dosage: 15 MG, TID
     Dates: start: 20150205
  4. ATROVENT [Concomitant]
     Active Substance: IPRATROPIUM BROMIDE
     Dosage: 2 PUFF, BID
     Dates: start: 20121003
  5. TRACLEER [Suspect]
     Active Substance: BOSENTAN\BOSENTAN MONOHYDRATE
     Indication: PULMONARY HYPERTENSION
     Dosage: 15.625 MG, Q12HRS
     Route: 048
     Dates: start: 20111123
  6. DIURIL [Concomitant]
     Active Substance: CHLOROTHIAZIDE
     Dosage: 100 MG, Q12HRS
     Dates: start: 20150205

REACTIONS (3)
  - Ear tube insertion [Unknown]
  - Haemophilus test positive [Recovered/Resolved]
  - Otitis media [Recovered/Resolved]
